FAERS Safety Report 5726481-9 (Version None)
Quarter: 2008Q2

REPORT INFORMATION
  Report Type: 
  Country: None (occurrence: None)
  Receive Date: 20080502
  Receipt Date: 20080421
  Transmission Date: 20081010
  Serious: Yes (Hospitalization, Other)
  Sender: FDA-Public Use
  Company Number: US-WYE-H03682408

PATIENT
  Sex: Female
  Weight: 50.85 kg

DRUGS (6)
  1. EFFEXOR XR [Suspect]
     Indication: DEPRESSION
     Route: 048
     Dates: start: 20071101, end: 20080401
  2. AMBIEN [Suspect]
     Dosage: ^A HANDFUL^
  3. RESTORIL [Concomitant]
     Dosage: UNKNOWN
  4. XANAX [Concomitant]
     Dosage: UNKNOWN
  5. ASCORBIC ACID [Concomitant]
     Dosage: UNKNOWN
  6. VITAMIN D [Concomitant]
     Dosage: UNKNOWN

REACTIONS (7)
  - AGGRESSION [None]
  - ASPHYXIA [None]
  - CONDITION AGGRAVATED [None]
  - DEPRESSION [None]
  - INTENTIONAL OVERDOSE [None]
  - SUICIDAL IDEATION [None]
  - SUICIDE ATTEMPT [None]
